FAERS Safety Report 8532835-8 (Version None)
Quarter: 2012Q3

REPORT INFORMATION
  Report Type: 
  Country: None (occurrence: None)
  Receive Date: 20120705
  Receipt Date: 20120627
  Transmission Date: 20120928
  Serious: Yes (Other)
  Sender: FDA-Public Use
  Company Number: 2012032754

PATIENT
  Age: 55 Year
  Sex: Female

DRUGS (3)
  1. CETIRIZINE HCL [Concomitant]
  2. PRIVIGEN [Suspect]
     Dosage: 20 ML TOTAL, INTRAVENOUS
     Route: 042
  3. ACETAMINOPHEN [Concomitant]

REACTIONS (3)
  - THROAT TIGHTNESS [None]
  - CHEST DISCOMFORT [None]
  - COUGH [None]
